FAERS Safety Report 20811083 (Version 3)
Quarter: 2022Q2

REPORT INFORMATION
  Report Type: Spontaneous
  Country: AT (occurrence: AT)
  Receive Date: 20220510
  Receipt Date: 20220615
  Transmission Date: 20220721
  Serious: Yes (Other)
  Sender: FDA-Public Use
  Company Number: AT-SUN PHARMACEUTICAL INDUSTRIES LTD-2021RR-333502

PATIENT
  Age: 67 Year
  Sex: Male

DRUGS (7)
  1. GEMCITABINE HYDROCHLORIDE [Suspect]
     Active Substance: GEMCITABINE HYDROCHLORIDE
     Indication: Pancreatic carcinoma metastatic
     Dosage: UNK UNK, UNKNOWN
     Route: 065
  2. IRINOTECAN [Suspect]
     Active Substance: IRINOTECAN
     Indication: Pancreatic carcinoma metastatic
     Dosage: 70 MG/M2, UNKNOWN
     Route: 065
  3. IRINOTECAN [Suspect]
     Active Substance: IRINOTECAN
     Dosage: 400 MG/M2, UNKNOWN
     Route: 065
  4. LEUCOVORIN CALCIUM [Suspect]
     Active Substance: LEUCOVORIN CALCIUM
     Indication: Pancreatic carcinoma metastatic
     Dosage: 400 MG/M2, UNKNOWN
     Route: 065
  5. FLUOROURACIL [Suspect]
     Active Substance: FLUOROURACIL
     Indication: Pancreatic carcinoma metastatic
     Dosage: 2400 MG/M2, UNKNOWN
     Route: 065
  6. FLUOROURACIL [Suspect]
     Active Substance: FLUOROURACIL
     Dosage: 400 MG/M2, UNKNOWN
     Route: 065
  7. PACLITAXEL [Suspect]
     Active Substance: PACLITAXEL
     Indication: Pancreatic carcinoma metastatic
     Dosage: UNK UNK, UNKNOWN
     Route: 065

REACTIONS (9)
  - Abdominal pain [Unknown]
  - Metastases to peritoneum [Unknown]
  - Neuropathy peripheral [Unknown]
  - Malignant neoplasm progression [Unknown]
  - Back pain [Unknown]
  - Fatigue [Unknown]
  - Diarrhoea [Unknown]
  - Neutropenia [Unknown]
  - Therapeutic product effect incomplete [Unknown]
